FAERS Safety Report 4307479-4 (Version None)
Quarter: 2004Q1

REPORT INFORMATION
  Report Type: 
  Country: None (occurrence: None)
  Receive Date: 20040226
  Receipt Date: 20040212
  Transmission Date: 20041129
  Serious: Yes (Hospitalization, Other)
  Sender: FDA-Public Use
  Company Number: 2003123385

PATIENT
  Age: 77 Year
  Sex: Male

DRUGS (11)
  1. LIPITOR [Suspect]
     Indication: HYPERLIPIDAEMIA
     Dosage: 5 MG (DAILY), ORAL
     Route: 048
     Dates: start: 20030410, end: 20030908
  2. PRAVASTATIN [Suspect]
     Indication: HYPERLIPIDAEMIA
     Dosage: 5 MG (PER DAY), ORAL
     Route: 048
     Dates: start: 20021227, end: 20030409
  3. FENOTEROL HYDROBROMIDE (FENOTEROL HYDROBROMIDE) [Concomitant]
  4. AMBROXOL HYDROCHLORIDE (AMBROXOL HYDROCHLORIDE) [Concomitant]
  5. LEVOFLOXACIN [Concomitant]
  6. EPRAZINONE HYDROCHLORIDE (EPRAZINONE HYDROCHLORIDE) [Concomitant]
  7. CELESTAMINE TAB [Concomitant]
  8. SUPLATAST TOSILATE (SUPLATAST TOSILATE) [Concomitant]
  9. OXATOMIDE [Concomitant]
  10. PL GRAN. (CAFFEINE, SALICYLAMIDE, PARACETAMOL, PROMETHAZINE METHYLENE [Concomitant]
  11. SENNOSIDE A+B [Concomitant]

REACTIONS (17)
  - APLASTIC ANAEMIA [None]
  - ASTHMA [None]
  - BLOOD BILIRUBIN INCREASED [None]
  - BLOOD CHOLESTEROL INCREASED [None]
  - BLOOD CREATINE PHOSPHOKINASE INCREASED [None]
  - BLOOD FIBRINOGEN INCREASED [None]
  - BLOOD UREA INCREASED [None]
  - BRONCHIOLITIS [None]
  - C-REACTIVE PROTEIN INCREASED [None]
  - CONDITION AGGRAVATED [None]
  - DRUG INEFFECTIVE [None]
  - INFECTION [None]
  - LIPID METABOLISM DISORDER [None]
  - MYALGIA [None]
  - PAIN [None]
  - PANCYTOPENIA [None]
  - WHITE BLOOD CELL COUNT INCREASED [None]
